FAERS Safety Report 25264412 (Version 1)
Quarter: 2025Q2

REPORT INFORMATION
  Report Type: Spontaneous
  Country: US (occurrence: US)
  Receive Date: 20250502
  Receipt Date: 20250502
  Transmission Date: 20250717
  Serious: No
  Sender: JOHNSON AND JOHNSON
  Company Number: US-JNJFOC-20250441901

PATIENT
  Age: 23 Year
  Sex: Female

DRUGS (1)
  1. SPRAVATO [Suspect]
     Active Substance: ESKETAMINE
     Indication: Product used for unknown indication
     Route: 045
     Dates: start: 202501

REACTIONS (4)
  - Eye pain [Unknown]
  - Nasal septum deviation [Unknown]
  - Rhinitis allergic [Unknown]
  - Sneezing [Unknown]

NARRATIVE: CASE EVENT DATE: 20250421
